FAERS Safety Report 25933126 (Version 1)
Quarter: 2025Q4

REPORT INFORMATION
  Report Type: Spontaneous
  Country: US (occurrence: US)
  Receive Date: 20251017
  Receipt Date: 20251017
  Transmission Date: 20260118
  Serious: Yes (Other)
  Sender: SPECGX
  Company Number: US-SPECGX-T202501679

PATIENT
  Age: 46 Year
  Sex: Male
  Weight: 82 kg

DRUGS (4)
  1. DEXTROAMPHETAMINE SACCHARATE, AMPHETAMINE ASPARTATE, DEXTROAMPHETAMINE [Suspect]
     Active Substance: AMPHETAMINE ASPARTATE\AMPHETAMINE SULFATE\DEXTROAMPHETAMINE SACCHARATE\DEXTROAMPHETAMINE SULFATE
     Indication: Attention deficit hyperactivity disorder
     Dosage: 15 MILLIGRAM, QD (UPON WAKING ON EMPTY STOMACH)
     Route: 048
     Dates: start: 20250921
  2. VITAMINS [Concomitant]
     Active Substance: VITAMINS
     Indication: Product used for unknown indication
     Dosage: ONCE DAILY (AFTER MORNING MEAL)
     Route: 065
  3. FISH OIL [Concomitant]
     Active Substance: FISH OIL
     Indication: Product used for unknown indication
     Dosage: ONCE DAILY (AFTER MORNING MEAL)
     Route: 065
  4. NUTRAFOL [Concomitant]
     Indication: Product used for unknown indication
     Dosage: ONCE DAILY (AFTER MORNING MEAL)
     Route: 065

REACTIONS (7)
  - Condition aggravated [Unknown]
  - Attention deficit hyperactivity disorder [Unknown]
  - Asthenia [Unknown]
  - Fatigue [Unknown]
  - Impaired work ability [Unknown]
  - Loss of personal independence in daily activities [Unknown]
  - Drug ineffective [Unknown]

NARRATIVE: CASE EVENT DATE: 20250901
